FAERS Safety Report 9857018 (Version 1)
Quarter: 2014Q1

REPORT INFORMATION
  Report Type: Spontaneous
  Country: IN (occurrence: None)
  Receive Date: 20140128
  Receipt Date: 20140128
  Transmission Date: 20141002
  Serious: Yes (Hospitalization)
  Sender: FDA-Public Use
  Company Number: CC400206241

PATIENT
  Age: 31 Year
  Sex: Male

DRUGS (2)
  1. METRO IV (METRONIDAZOLE INJECTION); (MANFACT UNK) [Suspect]
     Indication: HEPATIC AMOEBIASIS
     Route: 042
     Dates: start: 20110925, end: 20111010
  2. METRONIDAZOLE [Suspect]
     Indication: HEPATIC AMOEBIASIS
     Dosage: 5 TABLETS DAILY, PO
     Route: 048
     Dates: start: 20111010, end: 20120125

REACTIONS (9)
  - Neuropathy peripheral [None]
  - Cerebellar ataxia [None]
  - Diarrhoea [None]
  - Economic problem [None]
  - Weight decreased [None]
  - Activities of daily living impaired [None]
  - Grand mal convulsion [None]
  - Blood glucose increased [None]
  - Blood urea increased [None]
